FAERS Safety Report 12529417 (Version 3)
Quarter: 2016Q3

REPORT INFORMATION
  Report Type: Report from Study
  Country: US (occurrence: US)
  Receive Date: 20160706
  Receipt Date: 20160922
  Transmission Date: 20161109
  Serious: Yes (Hospitalization)
  Sender: FDA-Public Use
  Company Number: US-AMGEN-USACT2016085833

PATIENT
  Age: 76 Year
  Sex: Male

DRUGS (6)
  1. ASPIRIN. [Concomitant]
     Active Substance: ASPIRIN
     Dosage: 325 MG, QD
     Route: 048
     Dates: start: 1989
  2. LANTUS [Concomitant]
     Active Substance: INSULIN GLARGINE
     Dosage: 33 UNIT, QD
     Route: 058
     Dates: start: 20160528
  3. PREFILLED AUTOINJECTOR/PEN [Suspect]
     Active Substance: DEVICE
     Indication: DYSLIPIDAEMIA
  4. AMG 145 [Suspect]
     Active Substance: EVOLOCUMAB
     Indication: HYPERLIPIDAEMIA
     Dosage: UNK UNK, QMO
     Route: 030
     Dates: start: 20130923, end: 20160404
  5. AMG 145 [Suspect]
     Active Substance: EVOLOCUMAB
     Indication: DYSLIPIDAEMIA
  6. PREFILLED AUTOINJECTOR/PEN [Suspect]
     Active Substance: DEVICE
     Indication: HYPERLIPIDAEMIA
     Dosage: UNK, QMO
     Route: 065
     Dates: start: 20130923, end: 20160404

REACTIONS (4)
  - Acute kidney injury [Recovering/Resolving]
  - Acute myocardial infarction [Recovering/Resolving]
  - Diabetic ketoacidosis [Recovered/Resolved]
  - Coronary artery disease [Not Recovered/Not Resolved]

NARRATIVE: CASE EVENT DATE: 20160530
